FAERS Safety Report 8013944-9 (Version None)
Quarter: 2011Q4

REPORT INFORMATION
  Report Type: 
  Country: None (occurrence: None)
  Receive Date: 20111229
  Receipt Date: 20111215
  Transmission Date: 20120403
  Serious: Yes (Hospitalization)
  Sender: FDA-Public Use
  Company Number: FR-ROCHE-1023804

PATIENT
  Sex: Male

DRUGS (14)
  1. ACTEMRA [Suspect]
     Dates: start: 20110112
  2. ACTEMRA [Suspect]
     Dates: start: 20110216
  3. ACTEMRA [Suspect]
     Dates: start: 20110324
  4. ACTEMRA [Suspect]
     Indication: RHEUMATOID ARTHRITIS
     Dates: start: 20101021
  5. ACTEMRA [Suspect]
     Dates: start: 20110428
  6. PREDNISONE TAB [Concomitant]
  7. ACTEMRA [Suspect]
     Dates: start: 20110629
  8. METHOTREXATE [Concomitant]
  9. ACTEMRA [Suspect]
     Dates: start: 20101118
  10. ACTEMRA [Suspect]
     Dates: start: 20110914
  11. ACTEMRA [Suspect]
     Dates: start: 20111017
  12. PREDNISONE TAB [Concomitant]
  13. ACTEMRA [Suspect]
     Dates: start: 20101216
  14. PREDNISONE TAB [Concomitant]

REACTIONS (4)
  - PULMONARY TUBERCULOSIS [None]
  - CARDIAC FAILURE [None]
  - CHOLECYSTITIS ACUTE [None]
  - ANGINA PECTORIS [None]
